FAERS Safety Report 4360695-8 (Version None)
Quarter: 2004Q3

REPORT INFORMATION
  Report Type: 
  Country: None (occurrence: None)
  Receive Date: 20040514
  Receipt Date: 20040504
  Transmission Date: 20050211
  Serious: Yes (Hospitalization)
  Sender: FDA-Public Use
  Company Number: 2004212649FR

PATIENT
  Age: 61 Year
  Sex: Male

DRUGS (10)
  1. VANTIN [Suspect]
     Dosage: ORAL
     Route: 048
     Dates: start: 20040305, end: 20040312
  2. PREDNISOLONE [Suspect]
     Indication: CHEMOTHERAPY
     Dosage: ORAL
     Route: 048
     Dates: start: 20040216, end: 20040220
  3. OFLOXACIN [Suspect]
     Dosage: ORAL
     Route: 048
     Dates: start: 20040305, end: 20040312
  4. DOXORUBICIN HCL [Suspect]
     Indication: CHEMOTHERAPY
     Dosage: IV
     Route: 042
     Dates: start: 20040216, end: 20040216
  5. CYCLOPHOSPHAMIDE [Suspect]
     Indication: CHEMOTHERAPY
     Dosage: IV
     Route: 042
     Dates: start: 20040216, end: 20040220
  6. ONCOVIN [Suspect]
     Indication: CHEMOTHERAPY
     Dosage: IV
     Route: 011
     Dates: start: 20040216, end: 20040216
  7. SOLU-MEDROL [Concomitant]
  8. ZOPHREN (ONDANSETRON HYDROCHLORIDE) [Concomitant]
  9. ALLOPURINOL TAB [Concomitant]
  10. SECALIP [Concomitant]

REACTIONS (4)
  - AGRANULOCYTOSIS [None]
  - HYPOGAMMAGLOBULINAEMIA [None]
  - INFECTION [None]
  - WHITE BLOOD CELL COUNT INCREASED [None]
